FAERS Safety Report 18782863 (Version 1)
Quarter: 2021Q1

REPORT INFORMATION
  Report Type: Report from Study
  Country: US (occurrence: US)
  Receive Date: 20210125
  Receipt Date: 20210125
  Transmission Date: 20210419
  Serious: Yes (Other)
  Sender: FDA-Public Use
  Company Number: US-MYLANLABS-2021M1004188

PATIENT
  Sex: Male

DRUGS (2)
  1. RINGER LACTATE                     /00467901/ [Concomitant]
     Active Substance: SODIUM LACTATE
     Indication: MEDICATION DILUTION
     Dosage: ASCORBIC ACID WAS DILUTED IN...
     Route: 042
  2. ASCORBIC ACID. [Suspect]
     Active Substance: ASCORBIC ACID
     Indication: COLON CANCER
     Dosage: 710 MILLIGRAM/KILOGRAM, QD....
     Route: 042

REACTIONS (2)
  - Off label use [Unknown]
  - Hypokalaemia [Unknown]
